FAERS Safety Report 18100859 (Version 1)
Quarter: 2020Q3

REPORT INFORMATION
  Report Type: Spontaneous
  Country: CA (occurrence: CA)
  Receive Date: 20200731
  Receipt Date: 20200731
  Transmission Date: 20201103
  Serious: Yes (Hospitalization, Other)
  Sender: FDA-Public Use
  Company Number: CA-SA-2020SA194016

PATIENT

DRUGS (20)
  1. ARAVA [Suspect]
     Active Substance: LEFLUNOMIDE
     Dosage: UNK
     Dates: start: 201812, end: 201904
  2. LEFLUNOMIDE. [Suspect]
     Active Substance: LEFLUNOMIDE
     Dosage: 20 MG
     Dates: start: 201812, end: 201904
  3. PREDNISONE. [Suspect]
     Active Substance: PREDNISONE
     Dosage: 25 MG
     Dates: start: 201906
  4. JARDIANCE [Concomitant]
     Active Substance: EMPAGLIFLOZIN
     Dosage: 25 MG
  5. SULFASALAZINE. [Suspect]
     Active Substance: SULFASALAZINE
     Dosage: 1000 MG, BID
     Dates: start: 201906, end: 201908
  6. SULFASALAZINE. [Suspect]
     Active Substance: SULFASALAZINE
     Dosage: 1000 MG, BID
     Dates: start: 201909, end: 201909
  7. SULFASALAZINE. [Suspect]
     Active Substance: SULFASALAZINE
     Dosage: UNK
     Dates: start: 201904, end: 201905
  8. METHOTREXATE SODIUM. [Suspect]
     Active Substance: METHOTREXATE SODIUM
     Dosage: 25 MG, QW
     Route: 058
     Dates: start: 201906, end: 201908
  9. PANTOPRAZOLE SODIUM. [Concomitant]
     Active Substance: PANTOPRAZOLE SODIUM
     Dosage: 40 MG
  10. XELJANZ [Concomitant]
     Active Substance: TOFACITINIB CITRATE
     Indication: PSORIATIC ARTHROPATHY
     Dosage: 5 MG, BID
     Route: 048
     Dates: start: 201909, end: 202001
  11. STELARA [Concomitant]
     Active Substance: USTEKINUMAB
     Dosage: UNK (2 DOSES)
     Dates: start: 201904
  12. STELARA [Concomitant]
     Active Substance: USTEKINUMAB
     Dosage: UNK
     Dates: start: 201909
  13. FOLIC ACID. [Concomitant]
     Active Substance: FOLIC ACID
     Dosage: 5 MG, 6 DAYS/WEEK
     Route: 048
  14. METHOTREXATE SODIUM. [Suspect]
     Active Substance: METHOTREXATE SODIUM
     Dosage: 25 MG, QW
     Route: 058
     Dates: start: 201904, end: 201905
  15. FLAGYL [Concomitant]
     Active Substance: METRONIDAZOLE\METRONIDAZOLE HYDROCHLORIDE
     Dosage: 500 MG, BID
  16. METHOTREXATE SODIUM. [Suspect]
     Active Substance: METHOTREXATE SODIUM
     Dosage: 15 MG, QW
     Route: 058
     Dates: start: 201909, end: 2019
  17. BUPROPION. [Concomitant]
     Active Substance: BUPROPION
     Dosage: 150 MG
     Route: 048
  18. LOPERAMIDE HCL [Concomitant]
     Active Substance: LOPERAMIDE HYDROCHLORIDE
     Dosage: 3 MG, TID
     Route: 048
  19. METFORMIN HCL [Concomitant]
     Active Substance: METFORMIN HYDROCHLORIDE
     Dosage: 500 MG
  20. SIMPONI [Concomitant]
     Active Substance: GOLIMUMAB
     Dosage: UNK

REACTIONS (14)
  - Joint swelling [Not Recovered/Not Resolved]
  - Gait disturbance [Unknown]
  - Alopecia [Unknown]
  - Drug ineffective [Unknown]
  - Inflammatory bowel disease [Unknown]
  - Arthralgia [Unknown]
  - Psoriasis [Not Recovered/Not Resolved]
  - Product use issue [Unknown]
  - Crohn^s disease [Unknown]
  - Intentional product use issue [Unknown]
  - Small intestinal obstruction [Unknown]
  - Stoma site ulcer [Unknown]
  - Musculoskeletal stiffness [Not Recovered/Not Resolved]
  - Tenderness [Unknown]
